FAERS Safety Report 9102052 (Version 1)
Quarter: 2013Q1

REPORT INFORMATION
  Report Type: Spontaneous
  Country: FR (occurrence: FR)
  Receive Date: 20130218
  Receipt Date: 20130218
  Transmission Date: 20140127
  Serious: Yes (Other)
  Sender: FDA-Public Use
  Company Number: FR-009507513-1301FRA009944

PATIENT
  Age: 56 None
  Sex: Female

DRUGS (9)
  1. VELMETIA [Suspect]
     Indication: DIABETES MELLITUS
     Dosage: 1 DF, BID
     Route: 048
     Dates: start: 201106, end: 201212
  2. METFORMIN [Suspect]
     Indication: DIABETES MELLITUS
     Dosage: 1000 MG, QD
     Dates: start: 20110610, end: 20121211
  3. DIAMICRON [Suspect]
     Indication: DIABETES MELLITUS
     Dosage: 60 MG, QAM
     Dates: start: 201106, end: 201212
  4. VOLTAREN [Suspect]
     Indication: BACK PAIN
     Dosage: UNK
     Dates: start: 20121203, end: 20121211
  5. TETRAZEPAM [Suspect]
     Indication: PRODUCT USED FOR UNKNOWN INDICATION
     Dosage: UNK
     Dates: start: 20121203, end: 20121211
  6. IXPRIM (ACETAMINOPHEN (+) TRAMADOL HYDROCHLORIDE) [Suspect]
     Indication: PRODUCT USED FOR UNKNOWN INDICATION
     Dosage: UNK
     Dates: start: 20121203, end: 20121211
  7. INEXIUM [Suspect]
     Indication: PRODUCT USED FOR UNKNOWN INDICATION
     Dosage: 20 MG, QAM
     Dates: start: 20121203, end: 20121211
  8. CRESTOR [Concomitant]
     Dosage: UNK
     Dates: end: 20121211
  9. BIPERIDYS [Concomitant]
     Dosage: 1 DF, BID
     Route: 048
     Dates: end: 20121211

REACTIONS (3)
  - Migraine [Unknown]
  - Renal failure [Recovering/Resolving]
  - Gastroenteritis [Recovered/Resolved]
